FAERS Safety Report 7883555-4 (Version None)
Quarter: 2011Q4

REPORT INFORMATION
  Report Type: 
  Country: None (occurrence: None)
  Receive Date: 20111031
  Receipt Date: 20111018
  Transmission Date: 20120403
  Serious: Yes (Death)
  Sender: FDA-Public Use
  Company Number: FK201102376

PATIENT
  Age: 60 Year
  Sex: Male

DRUGS (2)
  1. IRINOTECAN HCL [Suspect]
     Indication: RECTAL CANCER
     Dosage: 150 MG/M2
  2. IRINOTECAN HCL [Suspect]
     Indication: METASTASES TO LUNG
     Dosage: 150 MG/M2

REACTIONS (5)
  - RALES [None]
  - INTERSTITIAL LUNG DISEASE [None]
  - CHEST PAIN [None]
  - PNEUMOTHORAX [None]
  - DYSPNOEA EXERTIONAL [None]
